FAERS Safety Report 16646297 (Version 1)
Quarter: 2019Q3

REPORT INFORMATION
  Report Type: Spontaneous
  Country: US (occurrence: US)
  Receive Date: 20190730
  Receipt Date: 20190730
  Transmission Date: 20191004
  Serious: No
  Sender: FDA-Public Use
  Company Number: US-009507513-1907USA012275

PATIENT
  Sex: Male

DRUGS (2)
  1. TEMODAR [Suspect]
     Active Substance: TEMOZOLOMIDE
     Indication: BRAIN NEOPLASM MALIGNANT
     Dosage: TAKE 1 CAPSULE BY MOUTH DAILY WITH 20MG CAPSULE ONCE DAILY FOR 6 WEEKS
     Route: 048
     Dates: start: 201906
  2. TEMODAR [Suspect]
     Active Substance: TEMOZOLOMIDE
     Dosage: TAKE 1 CAPSULE BY MOUTH WITH 100MG CAPSULE ONCE DAILY FOR 6 WEEKS
     Route: 048
     Dates: start: 201906

REACTIONS (1)
  - Headache [Not Recovered/Not Resolved]

NARRATIVE: CASE EVENT DATE: 2019
